FAERS Safety Report 8435824-7 (Version None)
Quarter: 2012Q2

REPORT INFORMATION
  Report Type: 
  Country: None (occurrence: None)
  Receive Date: 20120614
  Receipt Date: 20120604
  Transmission Date: 20120825
  Serious: Yes (Disabling)
  Sender: FDA-Public Use
  Company Number: US-ASTRAZENECA-2011SE42327

PATIENT
  Age: 74 Year
  Sex: Male
  Weight: 90.7 kg

DRUGS (5)
  1. LIPITOR [Suspect]
     Route: 065
  2. CRESTOR [Suspect]
     Route: 048
  3. CRESTOR [Suspect]
     Route: 048
     Dates: end: 20110518
  4. NEXIUM [Concomitant]
     Route: 048
  5. LEXAPRO [Concomitant]
     Indication: DEPRESSION
     Route: 048

REACTIONS (5)
  - MUSCLE ATROPHY [None]
  - RASH GENERALISED [None]
  - MUSCULAR WEAKNESS [None]
  - MYALGIA [None]
  - HYPOTONIA [None]
